FAERS Safety Report 25212311 (Version 1)
Quarter: 2025Q2

REPORT INFORMATION
  Report Type: Spontaneous
  Country: AU (occurrence: AU)
  Receive Date: 20250418
  Receipt Date: 20250418
  Transmission Date: 20250717
  Serious: Yes (Hospitalization)
  Sender: TAKEDA
  Company Number: AU-TAKEDA-2025TUS036915

PATIENT
  Age: 24 Year
  Sex: Female

DRUGS (1)
  1. VYVANSE [Suspect]
     Active Substance: LISDEXAMFETAMINE DIMESYLATE
     Indication: Attention deficit hyperactivity disorder
     Dosage: 30 MILLIGRAM, QD
     Dates: start: 20240817, end: 20250326

REACTIONS (11)
  - Dermatillomania [Not Recovered/Not Resolved]
  - Disturbance in attention [Unknown]
  - Drug ineffective [Unknown]
  - Migraine [Unknown]
  - Impaired work ability [Not Recovered/Not Resolved]
  - Irritable bowel syndrome [Unknown]
  - Mood swings [Unknown]
  - Product label issue [Unknown]
  - Somnolence [Unknown]
  - Vision blurred [Not Recovered/Not Resolved]
  - Weight decreased [Unknown]

NARRATIVE: CASE EVENT DATE: 20241201
